FAERS Safety Report 22609573 (Version 2)
Quarter: 2023Q2

REPORT INFORMATION
  Report Type: Spontaneous
  Country: US (occurrence: US)
  Receive Date: 20230616
  Receipt Date: 20230623
  Transmission Date: 20230722
  Serious: No
  Sender: FDA-Public Use
  Company Number: US-002147023-NVSC2023US137279

PATIENT
  Age: 58 Year
  Sex: Female
  Weight: 108.84 kg

DRUGS (3)
  1. COMBIPATCH [Suspect]
     Active Substance: ESTRADIOL\NORETHINDRONE ACETATE
     Indication: Menopausal symptoms
     Dosage: UNK, BIW(0.05/0.14 MG ,ON MONDAY AND FRIDAY)
     Route: 062
     Dates: start: 202210
  2. COMBIPATCH [Suspect]
     Active Substance: ESTRADIOL\NORETHINDRONE ACETATE
     Dosage: UNK, BIW(0.05/0.14 MG ,ON MONDAY AND FRIDAY)
     Route: 062
     Dates: start: 202302
  3. COMBIPATCH [Suspect]
     Active Substance: ESTRADIOL\NORETHINDRONE ACETATE
     Dosage: UNK, BIW(0.05/0.14 MG ,ON MONDAY AND FRIDAY)
     Route: 062
     Dates: start: 202303

REACTIONS (7)
  - Application site scab [Recovered/Resolved]
  - Application site pruritus [Recovered/Resolved]
  - Application site erythema [Recovered/Resolved]
  - Application site dryness [Recovered/Resolved]
  - Application site irritation [Recovered/Resolved]
  - Application site reaction [Recovered/Resolved]
  - Off label use [Not Recovered/Not Resolved]

NARRATIVE: CASE EVENT DATE: 20230201
